FAERS Safety Report 7689742-2 (Version None)
Quarter: 2011Q3

REPORT INFORMATION
  Report Type: 
  Country: None (occurrence: None)
  Receive Date: 20110817
  Receipt Date: 20110815
  Transmission Date: 20111222
  Serious: Yes (Death, Other)
  Sender: FDA-Public Use
  Company Number: TR-GILEAD-2011-0042893

PATIENT
  Age: 40 Year
  Sex: Male

DRUGS (1)
  1. VIREAD [Suspect]
     Indication: HEPATITIS B

REACTIONS (2)
  - DEATH [None]
  - RENAL FAILURE [None]
